FAERS Safety Report 8059106-0 (Version None)
Quarter: 2012Q1

REPORT INFORMATION
  Report Type: 
  Country: None (occurrence: None)
  Receive Date: 20120120
  Receipt Date: 20120110
  Transmission Date: 20120608
  Serious: Yes (Hospitalization)
  Sender: FDA-Public Use
  Company Number: FR-JNJFOC-20120103151

PATIENT
  Age: 16 Year
  Sex: Male

DRUGS (6)
  1. REMICADE [Suspect]
     Indication: CROHN'S DISEASE
     Dosage: 1ST COURSE
     Route: 042
     Dates: start: 20110809
  2. CORTICOSTEROIDS [Concomitant]
     Dates: end: 20110721
  3. PENTASA [Suspect]
     Indication: CROHN'S DISEASE
     Dates: start: 20110301, end: 20110805
  4. ALVERINE [Concomitant]
  5. BIPERIDYS [Concomitant]
     Dates: start: 20110201
  6. SIMETHICONE [Concomitant]

REACTIONS (1)
  - PANCREATITIS ACUTE [None]
